FAERS Safety Report 16597788 (Version 1)
Quarter: 2019Q3

REPORT INFORMATION
  Report Type: Spontaneous
  Country: US (occurrence: US)
  Receive Date: 20190606
  Receipt Date: 20190606
  Transmission Date: 20191004
  Serious: No
  Sender: FDA-Public Use
  Company Number: None

PATIENT

DRUGS (1)
  1. IV BAG OF NS WITH POTASSIUM [Suspect]
     Active Substance: POTASSIUM CHLORIDE\SODIUM CHLORIDE

REACTIONS (3)
  - Product appearance confusion [None]
  - Intercepted product selection error [None]
  - Circumstance or information capable of leading to medication error [None]
